FAERS Safety Report 18025408 (Version 3)
Quarter: 2020Q3

REPORT INFORMATION
  Report Type: Spontaneous
  Country: JP (occurrence: JP)
  Receive Date: 20200715
  Receipt Date: 20200909
  Transmission Date: 20201103
  Serious: Yes (Hospitalization, Other)
  Sender: FDA-Public Use
  Company Number: JP-GLAXOSMITHKLINE-JP2020JPN124959

PATIENT
  Age: 56 Year
  Sex: Female
  Weight: 57 kg

DRUGS (20)
  1. CALONAL TABLET [Concomitant]
     Dosage: UNK MG
  2. OLOPATADINE HYDROCHLORIDE OD TABLETS [Concomitant]
     Dosage: UNK MG
  3. ISOTONIC SODIUM CHLORIDE SOLUTION [Concomitant]
     Active Substance: SODIUM CHLORIDE
     Dosage: UNK
  4. SAMTIREL [Suspect]
     Active Substance: ATOVAQUONE
     Indication: ANTIFUNGAL PROPHYLAXIS
     Dosage: 750 MG, QD
     Route: 048
     Dates: start: 20200122, end: 20200131
  5. SAMTIREL [Suspect]
     Active Substance: ATOVAQUONE
     Dosage: UNK
     Route: 048
     Dates: start: 2020, end: 2020
  6. LEVOFLOXACIN. [Suspect]
     Active Substance: LEVOFLOXACIN
     Indication: INFECTION
     Dosage: 500 MG, QD
     Route: 048
     Dates: start: 20200128, end: 20200131
  7. BIO?THREE COMBINATION TABLETS [Concomitant]
  8. DELSPART [Concomitant]
     Active Substance: CLOBETASOL PROPIONATE
     Dosage: 0.05 UNK
  9. FAMOTIDINE. [Suspect]
     Active Substance: FAMOTIDINE
     Indication: GASTRIC ULCER
     Dosage: 20 MG, QD
     Route: 048
     Dates: start: 20200128, end: 20200131
  10. CYLOCIDE N [Concomitant]
     Active Substance: CYTARABINE
     Indication: ACUTE MYELOID LEUKAEMIA
     Dosage: 2000 MG, 1D
     Route: 042
  11. POSTERISAN FORTE OINTMENT (E. COLI + HYDROCORTISONE) [Concomitant]
     Dosage: UNK G
  12. DAUNORUBICIN HYDROCHLORIDE. [Concomitant]
     Active Substance: DAUNORUBICIN HYDROCHLORIDE
     Indication: ACUTE MYELOID LEUKAEMIA
     Dosage: UNK
  13. TEPRENONE CAPSULES [Concomitant]
     Dosage: UNK MG
  14. FLUCONAZOLE CAPSULE [Concomitant]
     Active Substance: FLUCONAZOLE
     Dosage: 200 MG, 1D
     Route: 048
  15. GRANISETRON HYDROCHLORIDE INTRAVENOUS INFUSION BAG [Concomitant]
     Dosage: 1 MG
  16. CYLOCIDE N [Concomitant]
     Active Substance: CYTARABINE
     Dosage: UNK
  17. SOLDEM 3A [Concomitant]
     Active Substance: CARBOHYDRATES\POTASSIUM CHLORIDE\SODIUM CHLORIDE\SODIUM LACTATE
     Dosage: UNK ML
  18. BAKTAR [Suspect]
     Active Substance: SULFAMETHOXAZOLE\TRIMETHOPRIM
     Dosage: UNK
  19. TRAMAL OD TABLETS [Concomitant]
     Dosage: 100 MG, 1D
     Route: 048
  20. DEXART INJECTION [Concomitant]
     Active Substance: DEXAMETHASONE SODIUM PHOSPHATE
     Dosage: 6.6 MG, 1D
     Route: 042

REACTIONS (4)
  - Prescribed underdose [Unknown]
  - Toxic skin eruption [Recovering/Resolving]
  - Product use issue [Unknown]
  - Erythema [Recovering/Resolving]

NARRATIVE: CASE EVENT DATE: 20200122
